FAERS Safety Report 8574661 (Version 4)
Quarter: 2013Q4

REPORT INFORMATION
  Report Type: Report from Study
  Country: US (occurrence: US)
  Receive Date: 20120522
  Receipt Date: 20131118
  Transmission Date: 20140711
  Serious: Yes (Hospitalization)
  Sender: FDA-Public Use
  Company Number: US-ELI_LILLY_AND_COMPANY-US201205005139

PATIENT
  Age: 54 Year
  Sex: Female

DRUGS (13)
  1. TERIPARATIDE [Suspect]
     Indication: OSTEOPOROSIS
     Dosage: UNK
     Route: 065
     Dates: start: 201204
  2. TERIPARATIDE [Suspect]
     Dosage: UNK
     Route: 065
  3. PREDNISONE [Concomitant]
     Indication: LUNG DISORDER
     Dosage: UNK
  4. CELEBREX [Concomitant]
     Dosage: UNK
  5. DILTIAZEM [Concomitant]
     Dosage: UNK
  6. FEXOFENADINE [Concomitant]
     Dosage: UNK
  7. PANTOPRAZOLE SODIUM [Concomitant]
     Dosage: UNK
  8. PULMICORT [Concomitant]
     Dosage: UNK
  9. SEREVENT [Concomitant]
     Dosage: UNK
  10. SERTRALINE HYDROCHLORIDE [Concomitant]
     Dosage: UNK
  11. VITAMIN D [Concomitant]
     Dosage: UNK
  12. DUONEB [Concomitant]
     Dosage: UNK
  13. MULTIPLE VITAMINS [Concomitant]
     Dosage: UNK

REACTIONS (7)
  - Wound infection staphylococcal [Recovered/Resolved]
  - Fatigue [Unknown]
  - Feeling abnormal [Unknown]
  - Limb discomfort [Unknown]
  - Pain in extremity [Unknown]
  - Malaise [Unknown]
  - Nasopharyngitis [Unknown]
